FAERS Safety Report 8976651 (Version 3)
Quarter: 2013Q1

REPORT INFORMATION
  Report Type: Spontaneous
  Country: US (occurrence: US)
  Receive Date: 20121220
  Receipt Date: 20130319
  Transmission Date: 20140127
  Serious: Yes (Death, Other)
  Sender: FDA-Public Use
  Company Number: US-PFIZER INC-2012320010

PATIENT
  Sex: 0

DRUGS (7)
  1. ACCUPRIL [Suspect]
     Dosage: UNK
  2. ALDACTONE [Suspect]
     Dosage: UNK
  3. CALAN [Suspect]
     Dosage: UNK
  4. INSPRA [Suspect]
     Dosage: UNK
  5. NITROSTAT [Suspect]
     Dosage: UNK
  6. NEURONTIN [Suspect]
     Dosage: UNK
  7. PROTONIX [Suspect]
     Dosage: UNK

REACTIONS (1)
  - Death [Fatal]
